FAERS Safety Report 4352532-2 (Version None)
Quarter: 2004Q2

REPORT INFORMATION
  Report Type: 
  Country: None (occurrence: None)
  Receive Date: 20040503
  Receipt Date: 20040503
  Transmission Date: 20050107
  Serious: Yes (Hospitalization, Disabling, Other)
  Sender: FDA-Public Use
  Company Number: None

PATIENT
  Age: 61 Year
  Sex: Male
  Weight: 67.6 kg

DRUGS (7)
  1. OMEPRAZOLE [Suspect]
     Indication: GASTROOESOPHAGEAL REFLUX DISEASE
     Dosage: 20 MG PO QD
     Route: 048
     Dates: start: 20041202
  2. PHENYTOIN [Suspect]
     Indication: CONVULSION
     Dosage: 200 MG AM, 300 MG Q PM
     Dates: start: 20031201
  3. CLOPIDOGREL BISULFATE [Concomitant]
  4. ASA [Concomitant]
  5. DIVALPROEX SODIUM [Concomitant]
  6. METFORMIN HCL [Concomitant]
  7. TRAZODONE HCL [Concomitant]

REACTIONS (6)
  - ATAXIA [None]
  - DRUG INTERACTION [None]
  - DRUG TOXICITY [None]
  - FALL [None]
  - NYSTAGMUS [None]
  - SUBDURAL HAEMATOMA [None]
